FAERS Safety Report 20325851 (Version 1)
Quarter: 2022Q1

REPORT INFORMATION
  Report Type: Spontaneous
  Country: US (occurrence: US)
  Receive Date: 20220112
  Receipt Date: 20220112
  Transmission Date: 20220423
  Serious: No
  Sender: FDA-Public Use
  Company Number: US-AUROBINDO-AUR-APL-2020-061308

PATIENT

DRUGS (1)
  1. DEXTROAMPHET SACCHARAT, AMPHET ASPARTATE, DEXTROAMPHET SULFATE AND AMP [Suspect]
     Active Substance: AMPHETAMINE ASPARTATE\AMPHETAMINE SULFATE\DEXTROAMPHETAMINE SACCHARATE\DEXTROAMPHETAMINE SULFATE
     Indication: Attention deficit hyperactivity disorder
     Dosage: UNK
     Route: 065
     Dates: start: 20201020

REACTIONS (9)
  - Anxiety [Unknown]
  - Memory impairment [Unknown]
  - Depressed mood [Unknown]
  - Depression [Unknown]
  - Mood altered [Unknown]
  - Hot flush [Unknown]
  - Feeling of despair [Unknown]
  - Drug ineffective [Unknown]
  - Product substitution issue [Unknown]
